FAERS Safety Report 11495073 (Version 1)
Quarter: 2015Q3

REPORT INFORMATION
  Report Type: Spontaneous
  Country: FR (occurrence: FR)
  Receive Date: 20150911
  Receipt Date: 20150911
  Transmission Date: 20151125
  Serious: Yes (Other)
  Sender: FDA-Public Use
  Company Number: FR-009507513-1509FRA004878

PATIENT
  Age: 52 Year
  Sex: Male

DRUGS (13)
  1. LIPANTHYL [Concomitant]
     Active Substance: FENOFIBRATE
     Dosage: 1 TABLET (160 MG) PER DAY
     Route: 048
  2. SEROPLEX [Suspect]
     Active Substance: ESCITALOPRAM OXALATE
     Indication: DEPRESSION
     Dosage: 1 TABLET PER DAY
     Route: 048
     Dates: end: 20150517
  3. LORMETAZEPAM [Concomitant]
     Active Substance: LORMETAZEPAM
     Dosage: 1 TABLET (2 MG) PER DAY IF NEEDED
     Route: 048
  4. LOXAPAC (LOXAPINE SUCCINATE) [Concomitant]
     Active Substance: LOXAPINE SUCCINATE
     Dosage: 2 TO 3 TABLETS PER DAY
     Route: 048
  5. JANUVIA [Suspect]
     Active Substance: SITAGLIPTIN PHOSPHATE
     Indication: TYPE 2 DIABETES MELLITUS
     Dosage: 1 TABLET PER DAY
     Route: 048
     Dates: end: 20150519
  6. GLIMEPIRIDE. [Suspect]
     Active Substance: GLIMEPIRIDE
     Indication: TYPE 2 DIABETES MELLITUS
     Dosage: 1 MG, QD (1 TABLET PER DAY)
     Route: 048
     Dates: end: 20150519
  7. DOLIPRANE [Concomitant]
     Active Substance: ACETAMINOPHEN
     Dosage: 2 TABLETS (2 G) PER DAY IF NEEDED
     Route: 048
  8. KARDEGIC [Concomitant]
     Active Substance: ASPIRIN LYSINE
     Dosage: 1 SACHET (75 MG) PER DAY
     Route: 048
  9. RISPERIDONE. [Suspect]
     Active Substance: RISPERIDONE
     Dosage: 4 MG, QD (1 TABLET PER DAY)
     Route: 048
  10. SAW PALMETTO [Concomitant]
     Active Substance: SAW PALMETTO
     Dosage: 1 CAPSULE (160 MG) PER DAY
     Route: 048
  11. METFORMIN [Suspect]
     Active Substance: METFORMIN HYDROCHLORIDE
     Indication: TYPE 2 DIABETES MELLITUS
     Dosage: 2 TO 3 TABLETS PER DAY
     Route: 048
     Dates: end: 20150519
  12. DEPAMIDE [Concomitant]
     Active Substance: VALPROMIDE
     Dosage: 2 TABLETS (600 MG) PER DAY
     Route: 048
  13. TENORDATE [Concomitant]
     Active Substance: ATENOLOL\NIFEDIPINE
     Dosage: 1 CAPSULE PER DAY
     Route: 048

REACTIONS (1)
  - Hypoglycaemia [Unknown]

NARRATIVE: CASE EVENT DATE: 201505
